FAERS Safety Report 10791694 (Version 6)
Quarter: 2015Q2

REPORT INFORMATION
  Report Type: Report from Study
  Country: PL (occurrence: PL)
  Receive Date: 20150213
  Receipt Date: 20150520
  Transmission Date: 20150821
  Serious: Yes (Hospitalization)
  Sender: FDA-Public Use
  Company Number: PL-ROCHE-1533142

PATIENT
  Age: 60 Year
  Sex: Male
  Weight: 58 kg

DRUGS (19)
  1. DIRONORM [Concomitant]
     Indication: HYPERTENSION
     Dosage: DRUG REPORTED AS DIRONORM (LISINOPRIL 20MG + AMLODIPINE 10MG)
     Route: 048
     Dates: start: 201401
  2. NACL .9% [Concomitant]
     Indication: PREMEDICATION
     Route: 042
     Dates: start: 20141006
  3. TORECAN [Concomitant]
     Active Substance: THIETHYLPERAZINE MALATE
     Indication: NAUSEA
     Route: 048
     Dates: start: 20141027
  4. HYDROCORTISONE. [Concomitant]
     Active Substance: HYDROCORTISONE
     Indication: CHILLS
     Route: 042
     Dates: start: 20141006
  5. HYDROCORTISONE. [Concomitant]
     Active Substance: HYDROCORTISONE
     Indication: PREMEDICATION
  6. ATOSSA [Concomitant]
     Indication: NAUSEA
     Route: 048
     Dates: start: 20141027
  7. CAPECITABINE. [Suspect]
     Active Substance: CAPECITABINE
     Indication: HER-2 POSITIVE GASTRIC CANCER
     Dosage: MOST RECENT DOSE WAS TAKEN ON 20/JAN/2015
     Route: 048
     Dates: start: 20141006
  8. METOCLOPRAMID [Concomitant]
     Active Substance: METOCLOPRAMIDE
     Indication: NAUSEA
     Route: 048
     Dates: start: 20141008
  9. TRASTUZUMAB [Suspect]
     Active Substance: TRASTUZUMAB
     Indication: HER-2 POSITIVE GASTRIC CANCER
     Route: 042
     Dates: start: 20141007, end: 20141007
  10. GLUCOPHAGE XR [Concomitant]
     Active Substance: METFORMIN HYDROCHLORIDE
     Indication: IMPAIRED FASTING GLUCOSE
     Route: 048
     Dates: start: 201401
  11. KREON [Concomitant]
     Active Substance: PANCRELIPASE
     Indication: PANCREATIC INSUFFICIENCY
     Dosage: 250000 U
     Route: 048
     Dates: start: 20141008
  12. FUROSEMID [Concomitant]
     Active Substance: FUROSEMIDE
     Route: 042
     Dates: start: 20141006
  13. TRAMAL [Concomitant]
     Active Substance: TRAMADOL
     Indication: PAIN
     Route: 048
     Dates: start: 20141207
  14. DEXAVEN [Concomitant]
     Active Substance: DEXAMETHASONE
     Indication: CHILLS
     Route: 042
     Dates: start: 20141006
  15. DEXAVEN [Concomitant]
     Active Substance: DEXAMETHASONE
     Indication: PREMEDICATION
  16. TRASTUZUMAB [Suspect]
     Active Substance: TRASTUZUMAB
     Dosage: Q3S, MOST RECENT DOSE WAS TAKEN ON 12/JAN/2015 AT 381MG
     Route: 042
     Dates: start: 20141028
  17. CLEXANE [Concomitant]
     Active Substance: ENOXAPARIN SODIUM
     Indication: THROMBOSIS PROPHYLAXIS
     Route: 058
     Dates: start: 20150201
  18. CISPLATIN. [Suspect]
     Active Substance: CISPLATIN
     Indication: HER-2 POSITIVE GASTRIC CANCER
     Dosage: MOST RECENT DOSE WAS TAKEN ON 12/JAN/2015
     Route: 042
     Dates: start: 20141006
  19. PERTUZUMAB [Suspect]
     Active Substance: PERTUZUMAB
     Indication: HER-2 POSITIVE GASTRIC CANCER
     Dosage: Q3S, MOST RECENT DOSE WAS TAKEN ON 12/JAN/2015
     Route: 042
     Dates: start: 20141006

REACTIONS (2)
  - Pneumatosis [Recovered/Resolved]
  - Anaemia [Recovered/Resolved]

NARRATIVE: CASE EVENT DATE: 20150202
